FAERS Safety Report 11254654 (Version 1)
Quarter: 2015Q3

REPORT INFORMATION
  Report Type: Spontaneous
  Country: US (occurrence: None)
  Receive Date: 20150708
  Receipt Date: 20150708
  Transmission Date: 20151125
  Serious: Yes (Other)
  Sender: FDA-Public Use
  Company Number: None

PATIENT
  Age: 66 Year
  Sex: Female
  Weight: 76.66 kg

DRUGS (18)
  1. PROPOFOL. [Suspect]
     Active Substance: PROPOFOL
     Indication: COLONOSCOPY
  2. METHOTREXATE [Concomitant]
     Active Substance: METHOTREXATE
  3. FOLIC ACID. [Concomitant]
     Active Substance: FOLIC ACID
  4. NAPROXEN. [Concomitant]
     Active Substance: NAPROXEN
  5. RECLAST [Concomitant]
     Active Substance: ZOLEDRONIC ACID
  6. TYLENOL [Concomitant]
     Active Substance: ACETAMINOPHEN
  7. VITAMIN D [Concomitant]
     Active Substance: CHOLECALCIFEROL
  8. VALIUM [Concomitant]
     Active Substance: DIAZEPAM
  9. PROPOFOL. [Suspect]
     Active Substance: PROPOFOL
     Indication: SEDATION
  10. CPAP [Concomitant]
     Active Substance: DEVICE
  11. RAMIPRIL. [Concomitant]
     Active Substance: RAMIPRIL
  12. VITAMIN D [Concomitant]
     Active Substance: CHOLECALCIFEROL
  13. NEXIUM [Concomitant]
     Active Substance: ESOMEPRAZOLE MAGNESIUM
  14. PREDNISONE. [Concomitant]
     Active Substance: PREDNISONE
  15. ASA [Concomitant]
     Active Substance: ASPIRIN
  16. VERAPAMIL CR [Concomitant]
  17. SYNTHROID [Concomitant]
     Active Substance: LEVOTHYROXINE SODIUM
  18. RESTASIS [Concomitant]
     Active Substance: CYCLOSPORINE

REACTIONS (8)
  - Chills [None]
  - Vertigo [None]
  - Tremor [None]
  - Vomiting [None]
  - Oxygen saturation decreased [None]
  - Cough [None]
  - Pyrexia [None]
  - Myalgia [None]

NARRATIVE: CASE EVENT DATE: 20150706
